FAERS Safety Report 5333399-2 (Version None)
Quarter: 2007Q2

REPORT INFORMATION
  Report Type: 
  Country: None (occurrence: None)
  Receive Date: 20070522
  Receipt Date: 20070522
  Transmission Date: 20071010
  Serious: No
  Sender: FDA-Public Use
  Company Number: None

PATIENT
  Age: 70 Year
  Sex: Male

DRUGS (1)
  1. ALENDRONATE SODIUM [Suspect]
     Indication: OSTEOPOROSIS
     Dosage: 70MG QWEEK PO
     Route: 048
     Dates: start: 20060907, end: 20060928

REACTIONS (2)
  - ERYTHEMA MULTIFORME [None]
  - SUNBURN [None]
